FAERS Safety Report 17399112 (Version 1)
Quarter: 2020Q1

REPORT INFORMATION
  Report Type: Spontaneous
  Country: DE (occurrence: DE)
  Receive Date: 20200210
  Receipt Date: 20200210
  Transmission Date: 20200409
  Serious: Yes (Other)
  Sender: FDA-Public Use
  Company Number: DE-DSJP-DSE-2020-104564

PATIENT

DRUGS (3)
  1. LIXIANA [Suspect]
     Active Substance: EDOXABAN TOSYLATE
     Indication: FACTOR V LEIDEN MUTATION
     Dosage: 60 MG, QD
     Dates: start: 2019
  2. LIXIANA [Suspect]
     Active Substance: EDOXABAN TOSYLATE
     Dosage: 60 MG, BID
  3. ANTIHYPERTENSIVES [Concomitant]
     Active Substance: UNSPECIFIED INGREDIENT
     Indication: HYPERTENSION
     Dosage: UNK

REACTIONS (3)
  - Pain in extremity [Unknown]
  - Cerebrovascular accident [Unknown]
  - Prescribed overdose [Unknown]

NARRATIVE: CASE EVENT DATE: 20200205
